FAERS Safety Report 21576501 (Version 1)
Quarter: 2022Q4

REPORT INFORMATION
  Report Type: Spontaneous
  Country: TW (occurrence: None)
  Receive Date: 20221110
  Receipt Date: 20221110
  Transmission Date: 20230112
  Serious: Yes (Other)
  Sender: FDA-Public Use
  Company Number: TW-ROCHE-3216055

PATIENT
  Age: 68 Year
  Sex: Female

DRUGS (11)
  1. RITUXIMAB [Suspect]
     Active Substance: RITUXIMAB
     Indication: Follicular lymphoma
     Dosage: R-COP
     Route: 058
     Dates: start: 2013
  2. RITUXIMAB [Suspect]
     Active Substance: RITUXIMAB
     Dosage: BR
     Route: 058
     Dates: start: 201511, end: 201804
  3. RITUXIMAB [Suspect]
     Active Substance: RITUXIMAB
     Dosage: R MAINTENANCE
     Route: 058
     Dates: start: 201511, end: 201804
  4. RITUXIMAB [Suspect]
     Active Substance: RITUXIMAB
     Dosage: RITUXIMAB + COPANLISIB
     Route: 058
     Dates: start: 20210807
  5. RITUXIMAB [Suspect]
     Active Substance: RITUXIMAB
     Dosage: RITUXIMAB SC + ORAL CHLORAMBUCIL
     Route: 058
     Dates: start: 20210819
  6. CYCLOPHOSPHAMIDE [Concomitant]
     Active Substance: CYCLOPHOSPHAMIDE
     Indication: Follicular lymphoma
     Dosage: R-COP
     Dates: start: 2013
  7. VINCRISTINE [Concomitant]
     Active Substance: VINCRISTINE
     Indication: Follicular lymphoma
     Dosage: R-COP
     Dates: start: 2013
  8. PREDNISONE [Concomitant]
     Active Substance: PREDNISONE
     Indication: Follicular lymphoma
     Dosage: R-COP
     Dates: start: 2013
  9. BENDAMUSTINE [Concomitant]
     Active Substance: BENDAMUSTINE
     Indication: Follicular lymphoma
     Dosage: BR
     Dates: start: 201511, end: 201804
  10. COPANLISIB [Concomitant]
     Active Substance: COPANLISIB
     Indication: Follicular lymphoma
     Dosage: RITUXIMAB + COPANLISIB
     Dates: start: 20210807
  11. CHLORAMBUCIL [Concomitant]
     Active Substance: CHLORAMBUCIL
     Indication: Follicular lymphoma
     Dosage: RITUXIMAB SC + ORAL CHLORAMBUCIL
     Route: 048
     Dates: start: 20220819

REACTIONS (3)
  - Disease progression [Unknown]
  - Pleural effusion [Recovered/Resolved]
  - Dyspnoea [Recovered/Resolved]

NARRATIVE: CASE EVENT DATE: 20220801
